FAERS Safety Report 5138681-X (Version None)
Quarter: 2006Q4

REPORT INFORMATION
  Report Type: 
  Country: None (occurrence: None)
  Receive Date: 20061024
  Receipt Date: 20061020
  Transmission Date: 20070319
  Serious: Yes (Death, Hospitalization)
  Sender: FDA-Public Use
  Company Number: HQWYE014424JAN03

PATIENT
  Age: 34 Year
  Sex: Female
  Weight: 74 kg

DRUGS (13)
  1. MYLOTARG [Suspect]
     Indication: ACUTE PROMYELOCYTIC LEUKAEMIA
     Dosage: SEE IMAGE
     Route: 042
     Dates: start: 20021122, end: 20021122
  2. MYLOTARG [Suspect]
     Indication: ACUTE PROMYELOCYTIC LEUKAEMIA
     Dosage: SEE IMAGE
     Route: 042
     Dates: start: 20021206, end: 20021206
  3. ARSENIC PENTOXIDE (ARSENIC PENTOXIDE) [Suspect]
     Indication: LEUKAEMIA RECURRENT
     Dosage: 10 MG TOTAL DAILY DOSE, INTRAVENOUS
     Route: 042
     Dates: start: 20021230, end: 20030113
  4. ACYCLOVIR [Concomitant]
  5. SEPTRA DS [Concomitant]
  6. AVELOX [Concomitant]
  7. PROTONIX [Concomitant]
  8. LASIX [Concomitant]
  9. CELEXA [Concomitant]
  10. SYNTHROID [Concomitant]
  11. CANCIDAS [Concomitant]
  12. ALLOPURINOL [Concomitant]
  13. ORTO-NOVUM (MESTRANOL/NORETHISTERONE) [Concomitant]

REACTIONS (14)
  - ACUTE PROMYELOCYTIC LEUKAEMIA [None]
  - ASPERGILLOSIS [None]
  - BACTERIA STOOL IDENTIFIED [None]
  - BRONCHOPULMONARY ASPERGILLOSIS [None]
  - CEREBROVASCULAR ACCIDENT [None]
  - CYTOMEGALOVIRUS INFECTION [None]
  - DIASTOLIC DYSFUNCTION [None]
  - DISSEMINATED INTRAVASCULAR COAGULATION [None]
  - ELECTROCARDIOGRAM QT PROLONGED [None]
  - FEBRILE NEUTROPENIA [None]
  - HYPOTHYROIDISM [None]
  - MALIGNANT NEOPLASM PROGRESSION [None]
  - PANCYTOPENIA [None]
  - STEM CELL TRANSPLANT [None]
